FAERS Safety Report 5474660-0 (Version None)
Quarter: 2007Q3

REPORT INFORMATION
  Report Type: 
  Country: None (occurrence: None)
  Receive Date: 20070928
  Receipt Date: 20070921
  Transmission Date: 20080115
  Serious: Yes (Other)
  Sender: FDA-Public Use
  Company Number: 2007SP019166

PATIENT
  Age: 43 Year
  Sex: Male
  Weight: 81 kg

DRUGS (2)
  1. RIBAVIRIN [Suspect]
     Indication: HEPATITIS C
     Dosage: 600 MG;BID;PO
     Route: 048
     Dates: start: 20060721, end: 20070614
  2. PEGASYS [Suspect]
     Indication: HEPATITIS C
     Dosage: 180 MCG;QW;SC
     Route: 058
     Dates: start: 20060721, end: 20070614

REACTIONS (1)
  - BASAL CELL CARCINOMA [None]
